FAERS Safety Report 9233495 (Version 1)
Quarter: 2013Q2

REPORT INFORMATION
  Report Type: Spontaneous
  Country: JP (occurrence: JP)
  Receive Date: 20130416
  Receipt Date: 20130416
  Transmission Date: 20140414
  Serious: Yes (Death)
  Sender: FDA-Public Use
  Company Number: JP-BRISTOL-MYERS SQUIBB COMPANY-18751263

PATIENT
  Age: 75 Year
  Sex: Female
  Weight: 35 kg

DRUGS (3)
  1. BRIPLATIN [Suspect]
     Indication: GASTRIC CANCER
     Route: 042
     Dates: start: 20130204
  2. XELODA [Suspect]
     Dosage: TAB,EVG 04FEB2013 TO MRNG 09FEB13
     Route: 048
     Dates: start: 20130204
  3. HERCEPTIN [Concomitant]
     Dates: start: 20130204

REACTIONS (1)
  - Gastrointestinal perforation [Fatal]
